FAERS Safety Report 8336256-2 (Version None)
Quarter: 2012Q2

REPORT INFORMATION
  Report Type: 
  Country: None (occurrence: None)
  Receive Date: 20120504
  Receipt Date: 20120426
  Transmission Date: 20120825
  Serious: Yes (Other)
  Sender: FDA-Public Use
  Company Number: BR-PFIZER INC-2012104512

PATIENT
  Sex: Male
  Weight: 79 kg

DRUGS (4)
  1. COSOPT [Concomitant]
     Indication: GLAUCOMA
     Dosage: ONE DROP IN EACH EYE, TWICE DAILY
     Dates: start: 20070101, end: 20120201
  2. XALATAN [Suspect]
     Indication: GLAUCOMA
     Dosage: ONE DROP IN EACH EYE (3 UG) 1X/DAY
     Route: 047
     Dates: start: 20111001
  3. TRAVATAN [Concomitant]
     Indication: GLAUCOMA
     Dosage: ONE DROP IN EACH EYE, TWICE DAILY
     Dates: start: 20120326
  4. LUMIGAN [Concomitant]
     Indication: GLAUCOMA
     Dosage: ONE DROP IN EACH EYE, TWICE DAILY
     Dates: start: 20070101

REACTIONS (1)
  - VISUAL ACUITY REDUCED [None]
